FAERS Safety Report 25637139 (Version 1)
Quarter: 2025Q3

REPORT INFORMATION
  Report Type: Spontaneous
  Country: US (occurrence: US)
  Receive Date: 20250804
  Receipt Date: 20250804
  Transmission Date: 20251020
  Serious: No
  Sender: ALEXION PHARMACEUTICALS
  Company Number: US-AstraZeneca-CH-00923205A

PATIENT
  Age: 85 Year
  Sex: Female

DRUGS (1)
  1. WAINUA [Suspect]
     Active Substance: EPLONTERSEN
     Indication: Polyneuropathy
     Dosage: 45 MILLIGRAM, QMONTH
     Dates: start: 20250501

REACTIONS (1)
  - Pain in extremity [Unknown]
